FAERS Safety Report 6060078-9 (Version None)
Quarter: 2009Q1

REPORT INFORMATION
  Report Type: 
  Country: None (occurrence: None)
  Receive Date: 20090127
  Receipt Date: 20090112
  Transmission Date: 20090719
  Serious: Yes (Hospitalization)
  Sender: FDA-Public Use
  Company Number: 09P-229-0496953-00

PATIENT
  Sex: Male

DRUGS (3)
  1. SYNAGIS [Suspect]
     Indication: ATRIAL SEPTAL DEFECT
  2. SYNAGIS [Suspect]
     Indication: CARDIAC DISORDER
  3. SYNAGIS [Suspect]
     Indication: VENTRICULAR SEPTAL DEFECT

REACTIONS (2)
  - BRONCHIOLITIS [None]
  - RESPIRATORY SYNCYTIAL VIRUS INFECTION [None]
